FAERS Safety Report 19549711 (Version 1)
Quarter: 2021Q3

REPORT INFORMATION
  Report Type: Other
  Country: US (occurrence: US)
  Receive Date: 20210714
  Receipt Date: 20210714
  Transmission Date: 20211014
  Serious: Yes (Life-Threatening, Hospitalization, Other)
  Sender: FDA-Public Use
  Company Number: US-BIOLOGICAL E. LTD-2113810

PATIENT
  Age: 66 Year
  Sex: Male

DRUGS (1)
  1. DAPTOMYCIN. [Suspect]
     Active Substance: DAPTOMYCIN
     Indication: OSTEOMYELITIS
     Route: 065

REACTIONS (3)
  - Cardiac failure [Unknown]
  - Eosinophilic pneumonia [Recovering/Resolving]
  - Respiratory failure [Recovering/Resolving]
